FAERS Safety Report 5844910-7 (Version None)
Quarter: 2008Q3

REPORT INFORMATION
  Report Type: 
  Country: None (occurrence: None)
  Receive Date: 20080814
  Receipt Date: 20080808
  Transmission Date: 20090109
  Serious: Yes (Hospitalization)
  Sender: FDA-Public Use
  Company Number: US-KINGPHARMUSA00001-K200800939

PATIENT

DRUGS (2)
  1. ALTACE [Suspect]
     Dates: end: 20080710
  2. DYAZIDE [Suspect]
     Dosage: 1 DF, QD
     Dates: end: 20080710

REACTIONS (2)
  - DEHYDRATION [None]
  - RENAL FAILURE ACUTE [None]
